FAERS Safety Report 7248158-3 (Version None)
Quarter: 2011Q1

REPORT INFORMATION
  Report Type: 
  Country: None (occurrence: None)
  Receive Date: 20110127
  Receipt Date: 20101220
  Transmission Date: 20110831
  Serious: Yes (Hospitalization, Other)
  Sender: FDA-Public Use
  Company Number: US-BAYER-200941061NA

PATIENT
  Sex: Female
  Weight: 86.168 kg

DRUGS (9)
  1. ZOLOFT [Concomitant]
     Dosage: 25 MG, QD
     Dates: start: 20090803
  2. LOESTRIN FE 1/20 [Concomitant]
     Dosage: UNK
     Dates: start: 20090225
  3. YAZ [Suspect]
     Indication: PRODUCT USED FOR UNKNOWN INDICATION
     Dates: start: 20070101
  4. KLONOPIN [Concomitant]
     Dosage: 1 MG, QD
     Dates: start: 20090803
  5. ADDERALL 10 [Concomitant]
     Dosage: 10 MG, QD
     Dates: start: 20090803
  6. LOESTRIN FE 1/20 [Concomitant]
     Dosage: UNK
     Dates: end: 20090223
  7. YASMIN [Suspect]
     Indication: PRODUCT USED FOR UNKNOWN INDICATION
     Dates: start: 20070101
  8. OCELLA [Suspect]
     Dates: start: 20070101
  9. HYDROCODONE BITARTRATE [Concomitant]

REACTIONS (17)
  - TRAUMATIC LUNG INJURY [None]
  - NAUSEA [None]
  - RENAL COLIC [None]
  - MUSCLE SPASMS [None]
  - VOMITING [None]
  - PYELONEPHRITIS [None]
  - NEPHROLITHIASIS [None]
  - GALLBLADDER INJURY [None]
  - FLANK PAIN [None]
  - PAIN [None]
  - BACK PAIN [None]
  - RENAL FAILURE [None]
  - PAIN IN EXTREMITY [None]
  - DIVERTICULUM [None]
  - HYDRONEPHROSIS [None]
  - CALCULUS URETERIC [None]
  - DIARRHOEA [None]
